FAERS Safety Report 14064186 (Version 1)
Quarter: 2017Q4

REPORT INFORMATION
  Report Type: Spontaneous
  Country: US (occurrence: US)
  Receive Date: 20171009
  Receipt Date: 20171009
  Transmission Date: 20180321
  Serious: No
  Sender: FDA-Public Use
  Company Number: US-WEST-WARD PHARMACEUTICALS CORP.-US-H14001-17-02744

PATIENT
  Sex: Female

DRUGS (1)
  1. PROPANTHELINE BROMIDE. [Suspect]
     Active Substance: PROPANTHELINE BROMIDE
     Indication: HYPERHIDROSIS
     Route: 065
     Dates: start: 2005

REACTIONS (1)
  - Off label use [Unknown]

NARRATIVE: CASE EVENT DATE: 2005
